FAERS Safety Report 5755866-X (Version None)
Quarter: 2008Q2

REPORT INFORMATION
  Report Type: 
  Country: None (occurrence: None)
  Receive Date: 20080528
  Receipt Date: 20080513
  Transmission Date: 20081010
  Serious: Yes (Hospitalization)
  Sender: FDA-Public Use
  Company Number: 2007BI017103

PATIENT
  Age: 55 Year
  Sex: Female

DRUGS (17)
  1. TYSABRI [Suspect]
     Indication: MULTIPLE SCLEROSIS
     Dosage: 300 MG;QM;IV
     Route: 042
     Dates: start: 20061026, end: 20070801
  2. BACLOFEN [Concomitant]
  3. DITROPAN [Concomitant]
  4. FOSAMAX [Concomitant]
  5. WELLBUTRIN [Concomitant]
  6. TRAZODONE HCL [Concomitant]
  7. AMITRIPTYLINE HCL [Concomitant]
  8. NEURONTIN [Concomitant]
  9. CATAPRES [Concomitant]
  10. PERIOSTAT [Concomitant]
  11. LIPITOR [Concomitant]
  12. ALBUTEROL [Concomitant]
  13. LORATADINE [Concomitant]
  14. ONDANSETRON [Concomitant]
  15. BISACODYL [Concomitant]
  16. SODIUM PHOSPHATES [Concomitant]
  17. SENNA [Concomitant]

REACTIONS (10)
  - ANAEMIA [None]
  - BLOOD GLUCOSE INCREASED [None]
  - CYST [None]
  - ESCHERICHIA INFECTION [None]
  - GASTRIC DISORDER [None]
  - HYPOKALAEMIA [None]
  - INTESTINAL OBSTRUCTION [None]
  - OXYGEN SATURATION DECREASED [None]
  - PERIANAL ABSCESS [None]
  - PLATELET COUNT ABNORMAL [None]
